FAERS Safety Report 8165630-2 (Version None)
Quarter: 2012Q1

REPORT INFORMATION
  Report Type: 
  Country: None (occurrence: None)
  Receive Date: 20120223
  Receipt Date: 20120223
  Transmission Date: 20120608
  Serious: Yes (Life-Threatening, Hospitalization, Other)
  Sender: FDA-Public Use
  Company Number: None

PATIENT
  Sex: Male
  Weight: 90.7194 kg

DRUGS (1)
  1. GABAPENTIN [Suspect]
     Indication: BLOOD GLUCOSE DECREASED
     Dosage: 1-3 CAP/DAY; 2D WK 2/ __  ; 3D/3 PER DOSAGE; 4/DOSAGE
     Dates: start: 20111207

REACTIONS (12)
  - BLINDNESS TRANSIENT [None]
  - FALL [None]
  - OEDEMA PERIPHERAL [None]
  - INSOMNIA [None]
  - TESTICULAR PAIN [None]
  - HYPERTENSION [None]
  - ASTHENIA [None]
  - BREAST SWELLING [None]
  - PAIN [None]
  - BLOOD GLUCOSE DECREASED [None]
  - CARDIAC DISORDER [None]
  - ABASIA [None]
